FAERS Safety Report 13375523 (Version 1)
Quarter: 2017Q1

REPORT INFORMATION
  Report Type: Spontaneous
  Country: NL (occurrence: NL)
  Receive Date: 20170328
  Receipt Date: 20170328
  Transmission Date: 20170429
  Serious: Yes (Hospitalization)
  Sender: FDA-Public Use
  Company Number: NL-009507513-1702NLD010297

PATIENT
  Sex: Male

DRUGS (1)
  1. EZETROL [Suspect]
     Active Substance: EZETIMIBE
     Indication: HYPERCHOLESTEROLAEMIA
     Dosage: 10 MG QD
     Route: 048
     Dates: start: 2004

REACTIONS (4)
  - Abdominal pain [Recovered/Resolved]
  - Gastrointestinal pain [Recovered/Resolved]
  - Anal incontinence [Not Recovered/Not Resolved]
  - Abdominal pain [Not Recovered/Not Resolved]

NARRATIVE: CASE EVENT DATE: 2011
